FAERS Safety Report 4788496-7 (Version None)
Quarter: 2005Q4

REPORT INFORMATION
  Report Type: 
  Country: None (occurrence: None)
  Receive Date: 20051005
  Receipt Date: 20051005
  Transmission Date: 20060501
  Serious: Yes (Hospitalization)
  Sender: FDA-Public Use
  Company Number: None

PATIENT
  Age: 97 Year
  Sex: Female

DRUGS (13)
  1. PHENOBARBITAL (DOGS) [Suspect]
     Indication: CONVULSION
     Dosage: PO
     Route: 048
     Dates: start: 20050209
  2. DIGITEK [Concomitant]
  3. OMEPRAZOLE [Concomitant]
  4. SPIRINOLACTONE [Concomitant]
  5. ULTRACET [Concomitant]
  6. POTASSIUM CHLORIDE [Concomitant]
  7. MECLIZINE [Concomitant]
  8. AMIO [Concomitant]
  9. ISOSORBIDE [Concomitant]
  10. WARFARIN SODIUM [Concomitant]
  11. COZAAR [Concomitant]
  12. FUROSEMIDE [Concomitant]
  13. METOPROLOL [Concomitant]

REACTIONS (5)
  - CONFUSIONAL STATE [None]
  - DRUG LEVEL INCREASED [None]
  - FEELING ABNORMAL [None]
  - OVERDOSE [None]
  - WRONG DRUG ADMINISTERED [None]
